FAERS Safety Report 6534510-8 (Version None)
Quarter: 2010Q1

REPORT INFORMATION
  Report Type: 
  Country: None (occurrence: None)
  Receive Date: 20100112
  Receipt Date: 20100104
  Transmission Date: 20100710
  Serious: Yes (Other)
  Sender: FDA-Public Use
  Company Number: AT-PFIZER INC-2010000172

PATIENT
  Sex: Female

DRUGS (1)
  1. HALCION [Suspect]
     Dosage: 0.25 MG, UNK
     Route: 048

REACTIONS (1)
  - THROMBOSIS [None]
